FAERS Safety Report 15584141 (Version 1)
Quarter: 2018Q4

REPORT INFORMATION
  Report Type: Report from Study
  Country: IT (occurrence: IT)
  Receive Date: 20181105
  Receipt Date: 20181105
  Transmission Date: 20190205
  Serious: Yes (Other)
  Sender: FDA-Public Use
  Company Number: IT-ROCHE-2208511

PATIENT
  Age: 49 Year
  Sex: Male
  Weight: 76 kg

DRUGS (4)
  1. COBIMETINIB. [Suspect]
     Active Substance: COBIMETINIB
     Indication: MALIGNANT MELANOMA
     Dosage: MOST RECENT DOSE RECEIVED ON 08/JUN/2018 (60MG)
     Route: 048
     Dates: start: 20180522
  2. ATEZOLIZUMAB. [Suspect]
     Active Substance: ATEZOLIZUMAB
     Indication: MALIGNANT MELANOMA
     Dosage: MOST RECENT DOSE RECEIVED IN 05/JUN/2018.
     Route: 042
     Dates: start: 20180524
  3. BENTELAN [Concomitant]
     Active Substance: BETAMETHASONE SODIUM PHOSPHATE
     Indication: RASH MACULO-PAPULAR
     Route: 042
     Dates: start: 20180604, end: 20180604
  4. FLEBOCORTID [Concomitant]
     Active Substance: HYDROCORTISONE SODIUM SUCCINATE
     Indication: PRESYNCOPE
     Route: 042
     Dates: start: 20180522, end: 20180522

REACTIONS (1)
  - Mitral valve incompetence [Not Recovered/Not Resolved]

NARRATIVE: CASE EVENT DATE: 20180618
